FAERS Safety Report 6578126-6 (Version None)
Quarter: 2010Q1

REPORT INFORMATION
  Report Type: 
  Country: None (occurrence: None)
  Receive Date: 20100211
  Receipt Date: 20100201
  Transmission Date: 20100710
  Serious: Yes (Other)
  Sender: FDA-Public Use
  Company Number: US-PFIZER INC-2010014323

PATIENT
  Sex: Female
  Weight: 78.912 kg

DRUGS (6)
  1. CHANTIX [Suspect]
     Indication: SMOKING CESSATION THERAPY
     Route: 048
     Dates: start: 20100101
  2. METHOCARBAMOL [Concomitant]
  3. IBUPROFEN [Concomitant]
  4. OXYCODONE [Concomitant]
  5. SYNTHROID [Concomitant]
  6. PRAVASTATIN [Concomitant]

REACTIONS (2)
  - DYSPHAGIA [None]
  - THROAT TIGHTNESS [None]
